FAERS Safety Report 5826031-2 (Version None)
Quarter: 2008Q3

REPORT INFORMATION
  Report Type: 
  Country: None (occurrence: None)
  Receive Date: 20080729
  Receipt Date: 20080721
  Transmission Date: 20090109
  Serious: Yes (Hospitalization)
  Sender: FDA-Public Use
  Company Number: US-ELI_LILLY_AND_COMPANY-US200807004118

PATIENT
  Sex: Female

DRUGS (5)
  1. FORTEO [Suspect]
     Indication: OSTEOPOROSIS
     Dosage: UNK, UNK
     Dates: start: 20071101
  2. WELLBUTRIN [Concomitant]
  3. PROTONIX [Concomitant]
  4. THYROID TAB [Concomitant]
     Dosage: 0.75 UG, UNK
  5. QUESTRAN [Concomitant]
     Dosage: UNK, DAILY (1/D)

REACTIONS (9)
  - CONSTIPATION [None]
  - GASTROINTESTINAL SOUNDS ABNORMAL [None]
  - GASTROINTESTINAL STOMA COMPLICATION [None]
  - HYPOAESTHESIA [None]
  - INJECTION SITE HAEMATOMA [None]
  - MEDICATION RESIDUE [None]
  - MUSCULOSKELETAL PAIN [None]
  - PAIN [None]
  - PAIN IN EXTREMITY [None]
